FAERS Safety Report 9130205 (Version 2)
Quarter: 2013Q2

REPORT INFORMATION
  Report Type: Spontaneous
  Country: PR (occurrence: PR)
  Receive Date: 20130228
  Receipt Date: 20130410
  Transmission Date: 20140414
  Serious: Yes (Hospitalization, Other)
  Sender: FDA-Public Use
  Company Number: PR-ABBOTT-13P-131-1053291-00

PATIENT
  Age: 12 Year
  Sex: Female
  Weight: 36.32 kg

DRUGS (4)
  1. HUMIRA [Suspect]
     Indication: ARTHRITIS
     Route: 058
     Dates: start: 200804, end: 200810
  2. NAPROXEN [Concomitant]
     Indication: ARTHRITIS
     Route: 048
  3. ORAPRED [Concomitant]
     Indication: ARTHRITIS
     Route: 048
  4. METHOTREXATE [Concomitant]
     Indication: ARTHRITIS
     Route: 048

REACTIONS (8)
  - Neuromyelitis optica [Recovering/Resolving]
  - Peroneal nerve palsy [Recovered/Resolved]
  - Blindness unilateral [Not Recovered/Not Resolved]
  - Dysuria [Recovered/Resolved]
  - Intervertebral disc disorder [Recovering/Resolving]
  - Arthritis [Recovered/Resolved with Sequelae]
  - Abdominal pain [Recovering/Resolving]
  - Urinary retention [Recovering/Resolving]
